FAERS Safety Report 24289954 (Version 1)
Quarter: 2024Q3

REPORT INFORMATION
  Report Type: Spontaneous
  Country: US (occurrence: US)
  Receive Date: 20240906
  Receipt Date: 20240906
  Transmission Date: 20241016
  Serious: No
  Sender: BAUSCH AND LOMB
  Company Number: US-BAUSCHBL-2024BNL032465

PATIENT
  Age: 41 Year
  Sex: Female

DRUGS (1)
  1. BEPOTASTINE BESILATE [Suspect]
     Active Substance: BEPOTASTINE BESILATE
     Indication: Hypersensitivity
     Route: 047

REACTIONS (5)
  - Eye pain [Unknown]
  - Vomiting projectile [Unknown]
  - Fatigue [Unknown]
  - Hypersensitivity [Unknown]
  - Product after taste [Unknown]
